FAERS Safety Report 12423601 (Version 1)
Quarter: 2016Q2

REPORT INFORMATION
  Report Type: Spontaneous
  Country: US (occurrence: US)
  Receive Date: 20160601
  Receipt Date: 20160601
  Transmission Date: 20160815
  Serious: No
  Sender: FDA-Public Use
  Company Number: US-NOVEN PHARMACEUTICALS, INC.-US2015000609

PATIENT
  Age: 9 Year
  Sex: Female

DRUGS (3)
  1. DAYTRANA [Suspect]
     Active Substance: METHYLPHENIDATE
     Indication: ATTENTION DEFICIT/HYPERACTIVITY DISORDER
     Dosage: 10 MG, UNKNOWN
     Route: 062
     Dates: start: 201503
  2. DAYTRANA [Suspect]
     Active Substance: METHYLPHENIDATE
     Dosage: TWO 10 MG PATCHES
     Route: 062
  3. DAYTRANA [Suspect]
     Active Substance: METHYLPHENIDATE
     Dosage: 20 UNK, UNK
     Route: 062

REACTIONS (6)
  - Application site irritation [Unknown]
  - Wrong technique in product usage process [Unknown]
  - Drug ineffective [Unknown]
  - Application site erythema [Recovered/Resolved]
  - Drug effect increased [None]
  - Decreased appetite [Unknown]
